FAERS Safety Report 8093966-2 (Version None)
Quarter: 2012Q1

REPORT INFORMATION
  Report Type: 
  Country: None (occurrence: None)
  Receive Date: 20120130
  Receipt Date: 20120121
  Transmission Date: 20120608
  Serious: Yes (Other)
  Sender: FDA-Public Use
  Company Number: US-AMGEN-USASP2012004408

PATIENT
  Age: 46 Year
  Sex: Female

DRUGS (1)
  1. ENBREL [Suspect]
     Indication: RHEUMATOID ARTHRITIS
     Dosage: 25 MG, 2 TIMES/WK
     Dates: start: 19980101, end: 20120112

REACTIONS (9)
  - SINUSITIS [None]
  - DYSPNOEA [None]
  - NASAL CONGESTION [None]
  - PULMONARY FIBROSIS [None]
  - PNEUMONIA [None]
  - INTERSTITIAL LUNG DISEASE [None]
  - SINUS DISORDER [None]
  - PARANASAL SINUS HYPERSECRETION [None]
  - LUNG INFECTION [None]
